FAERS Safety Report 12326872 (Version 2)
Quarter: 2016Q2

REPORT INFORMATION
  Report Type: Spontaneous
  Country: CA (occurrence: CA)
  Receive Date: 20160503
  Receipt Date: 20160523
  Transmission Date: 20160815
  Serious: Yes (Hospitalization)
  Sender: FDA-Public Use
  Company Number: CA-ROCHE-1751204

PATIENT
  Age: 40 Year
  Sex: Female

DRUGS (6)
  1. QVAR [Concomitant]
     Active Substance: BECLOMETHASONE DIPROPIONATE
  2. ZENHALE [Concomitant]
     Active Substance: FORMOTEROL FUMARATE\MOMETASONE FUROATE
  3. XOLAIR [Suspect]
     Active Substance: OMALIZUMAB
     Indication: ASTHMA
     Route: 058
     Dates: start: 20150402
  4. PULMICORT TURBUHALER [Concomitant]
     Active Substance: BUDESONIDE
  5. BRICANYL [Concomitant]
     Active Substance: TERBUTALINE SULFATE
  6. NASONEX [Concomitant]
     Active Substance: MOMETASONE FUROATE

REACTIONS (2)
  - Migraine [Unknown]
  - Meningitis viral [Unknown]

NARRATIVE: CASE EVENT DATE: 201604
